FAERS Safety Report 8605653-X (Version None)
Quarter: 2012Q3

REPORT INFORMATION
  Report Type: 
  Country: None (occurrence: None)
  Receive Date: 20120820
  Receipt Date: 20120813
  Transmission Date: 20120928
  Serious: Yes (Other)
  Sender: FDA-Public Use
  Company Number: US-ASTRAZENECA-2012SE09079

PATIENT
  Age: 67 Year
  Sex: Male

DRUGS (2)
  1. INSULIN [Concomitant]
  2. CRESTOR [Suspect]
     Route: 048

REACTIONS (6)
  - PROSTATE CANCER [None]
  - DIABETES MELLITUS [None]
  - ARTHRALGIA [None]
  - NEOPLASM MALIGNANT [None]
  - BONE NEOPLASM MALIGNANT [None]
  - MUSCULAR WEAKNESS [None]
